FAERS Safety Report 8048989-6 (Version None)
Quarter: 2012Q1

REPORT INFORMATION
  Report Type: 
  Country: None (occurrence: None)
  Receive Date: 20120111
  Receipt Date: 20111227
  Transmission Date: 20120608
  Serious: Yes (Death)
  Sender: FDA-Public Use
  Company Number: 2012VX000016

PATIENT
  Age: 82 Year
  Sex: Male

DRUGS (4)
  1. DIAZEPAM [Suspect]
     Indication: PRODUCT USED FOR UNKNOWN INDICATION
     Dosage: INH
     Route: 055
  2. LAXATIVE [Suspect]
     Indication: PRODUCT USED FOR UNKNOWN INDICATION
     Dosage: INH
     Route: 065
  3. CARBAMAZEPINE [Suspect]
     Indication: PRODUCT USED FOR UNKNOWN INDICATION
     Dosage: INH
     Route: 055
  4. CARBON MONOXIDE [Suspect]
     Indication: PRODUCT USED FOR UNKNOWN INDICATION
     Dosage: INH
     Route: 055

REACTIONS (4)
  - RESPIRATORY ARREST [None]
  - COMPLETED SUICIDE [None]
  - TOXICITY TO VARIOUS AGENTS [None]
  - CARDIAC ARREST [None]
